FAERS Safety Report 14038265 (Version 1)
Quarter: 2017Q4

REPORT INFORMATION
  Report Type: Spontaneous
  Country: US (occurrence: US)
  Receive Date: 20171004
  Receipt Date: 20171004
  Transmission Date: 20180321
  Serious: No
  Sender: FDA-Public Use
  Company Number: US-GALDERMA-US17002917

PATIENT
  Age: 57 Year
  Sex: Female
  Weight: 56.7 kg

DRUGS (10)
  1. MIRVASO [Suspect]
     Active Substance: BRIMONIDINE TARTRATE
     Indication: ROSACEA
     Route: 061
     Dates: start: 20170401, end: 20170404
  2. SHEA BUTTER DAILY FACIAL CREAM [Concomitant]
     Route: 061
     Dates: start: 20170208
  3. REMIFEMIN [Concomitant]
     Active Substance: BLACK COHOSH
     Indication: MENOPAUSAL SYMPTOMS
  4. EFFEXOR [Concomitant]
     Active Substance: VENLAFAXINE HYDROCHLORIDE
     Indication: PRODUCT USED FOR UNKNOWN INDICATION
  5. BLACK COHOSH [Concomitant]
     Active Substance: BLACK COHOSH
     Indication: HOT FLUSH
     Dates: start: 2017
  6. ORACEA [Concomitant]
     Active Substance: DOXYCYCLINE
     Indication: ROSACEA
     Route: 048
     Dates: start: 20170401
  7. SOOLANTRA [Concomitant]
     Active Substance: IVERMECTIN
     Indication: ROSACEA
     Route: 061
     Dates: start: 20170401
  8. REPLENISHING GREEN TEA CLEANSER [Concomitant]
     Route: 061
  9. REMIFEMIN [Concomitant]
     Active Substance: BLACK COHOSH
     Indication: HOT FLUSH
  10. SHEA BUTTER LINES [Concomitant]
     Route: 061
     Dates: start: 20170105

REACTIONS (4)
  - Rash [Recovered/Resolved]
  - Rosacea [Recovered/Resolved]
  - Flushing [Recovered/Resolved]
  - Skin irritation [Recovered/Resolved]

NARRATIVE: CASE EVENT DATE: 20170402
